FAERS Safety Report 24440350 (Version 1)
Quarter: 2024Q4

REPORT INFORMATION
  Report Type: Spontaneous
  Country: US (occurrence: US)
  Receive Date: 20241016
  Receipt Date: 20241016
  Transmission Date: 20250114
  Serious: No
  Sender: RANBAXY
  Company Number: US-SUN PHARMACEUTICAL INDUSTRIES LTD-2024R1-465141

PATIENT
  Sex: Female

DRUGS (1)
  1. WINLEVI [Suspect]
     Active Substance: CLASCOTERONE
     Indication: Acne
     Dosage: UNK UNK, OD
     Route: 061
     Dates: start: 202408

REACTIONS (5)
  - Drug ineffective [Unknown]
  - Dry skin [Unknown]
  - Pain [Unknown]
  - Skin irritation [Unknown]
  - Therapy cessation [Unknown]
